FAERS Safety Report 5758492-1 (Version None)
Quarter: 2008Q2

REPORT INFORMATION
  Report Type: 
  Country: None (occurrence: None)
  Receive Date: 20080604
  Receipt Date: 20080523
  Transmission Date: 20081010
  Serious: Yes (Hospitalization, Other)
  Sender: FDA-Public Use
  Company Number: HQWYE484410NOV05

PATIENT
  Sex: Female
  Weight: 73.55 kg

DRUGS (5)
  1. PREMPHASE 14/14 [Suspect]
  2. PROVERA [Suspect]
  3. PREFEST [Suspect]
  4. CYCRIN [Suspect]
  5. PREMARIN [Suspect]

REACTIONS (3)
  - BREAST CANCER METASTATIC [None]
  - NON-SMALL CELL LUNG CANCER [None]
  - OESTROGEN RECEPTOR ASSAY POSITIVE [None]
